FAERS Safety Report 7480974-5 (Version None)
Quarter: 2011Q2

REPORT INFORMATION
  Report Type: 
  Country: None (occurrence: None)
  Receive Date: 20110506
  Receipt Date: 20110428
  Transmission Date: 20111010
  Serious: Yes (Hospitalization, Other)
  Sender: FDA-Public Use
  Company Number: 2010SP006045

PATIENT
  Age: 24 Year
  Sex: Female
  Weight: 58.9676 kg

DRUGS (3)
  1. VITAMINS NOS [Concomitant]
  2. NUVARING [Suspect]
     Indication: CONTRACEPTION
     Dates: start: 20030922, end: 20060425
  3. ZOLOFT [Concomitant]

REACTIONS (16)
  - MULTIPLE INJURIES [None]
  - FIBRIN D DIMER INCREASED [None]
  - HUMAN PAPILLOMA VIRUS TEST POSITIVE [None]
  - DEEP VEIN THROMBOSIS [None]
  - CONTUSION [None]
  - REFUSAL OF TREATMENT BY PATIENT [None]
  - DYSMENORRHOEA [None]
  - ANAEMIA [None]
  - OEDEMA PERIPHERAL [None]
  - BREAST CYST [None]
  - METRORRHAGIA [None]
  - ARTHRALGIA [None]
  - HEART VALVE INCOMPETENCE [None]
  - WISDOM TEETH REMOVAL [None]
  - VAGINAL DISCHARGE [None]
  - CERVICAL DYSPLASIA [None]
